FAERS Safety Report 17778612 (Version 2)
Quarter: 2021Q3

REPORT INFORMATION
  Report Type: Spontaneous
  Country: US (occurrence: US)
  Receive Date: 20200513
  Receipt Date: 20210929
  Transmission Date: 20211014
  Serious: Yes (Other)
  Sender: FDA-Public Use
  Company Number: US-NOVOPROD-727068

PATIENT
  Age: 66 Year
  Sex: Female

DRUGS (1)
  1. VICTOZA [Suspect]
     Active Substance: LIRAGLUTIDE
     Indication: TYPE 2 DIABETES MELLITUS
     Dosage: 1.8 MG
     Route: 058
     Dates: start: 20170808

REACTIONS (3)
  - Diabetic retinopathy [Unknown]
  - Retinal haemorrhage [Not Recovered/Not Resolved]
  - Intraocular lens implant [Unknown]

NARRATIVE: CASE EVENT DATE: 201801
